FAERS Safety Report 23340418 (Version 1)
Quarter: 2023Q4

REPORT INFORMATION
  Report Type: Spontaneous
  Country: IR (occurrence: IR)
  Receive Date: 20231227
  Receipt Date: 20231227
  Transmission Date: 20240110
  Serious: Yes (Death)
  Sender: FDA-Public Use
  Company Number: IR-MLMSERVICE-20231214-4724557-1

PATIENT
  Age: 11 Year
  Sex: Female

DRUGS (12)
  1. DEXAMETHASONE [Suspect]
     Active Substance: DEXAMETHASONE
     Indication: B-cell type acute leukaemia
     Dosage: ON DAY 15 OF HOSPITALIZATION
     Route: 065
     Dates: start: 20210922
  2. VINCRISTINE [Suspect]
     Active Substance: VINCRISTINE
     Indication: B-cell type acute leukaemia
     Dosage: ON DAY 15 OF HOSPITALIZATION
     Route: 065
     Dates: start: 20210922
  3. ASPARAGINASE [Suspect]
     Active Substance: ASPARAGINASE
     Indication: B-cell type acute leukaemia
     Dosage: ON DAY 15 OF HOSPITALIZATION
     Route: 065
     Dates: start: 20210922
  4. CLINDAMYCIN [Suspect]
     Active Substance: CLINDAMYCIN
     Indication: Antibiotic therapy
     Dosage: ON DAY 43 OF HOSPITALIZATION
     Route: 065
     Dates: start: 20211020
  5. CEFTRIAXONE [Suspect]
     Active Substance: CEFTRIAXONE\CEFTRIAXONE SODIUM
     Indication: Antibiotic therapy
     Dosage: ON DAY 43 OF HOSPITALIZATION
     Route: 065
     Dates: start: 20211020
  6. RASBURICASE [Concomitant]
     Active Substance: RASBURICASE
     Indication: Acute kidney injury
     Dates: start: 20210907, end: 20210913
  7. RASBURICASE [Concomitant]
     Active Substance: RASBURICASE
     Indication: Tumour lysis syndrome
  8. REMDESIVIR [Concomitant]
     Active Substance: REMDESIVIR
     Indication: COVID-19
     Dosage: ON THE SECOND DAY OF HOSPITALISATION (LOADING DOSE- DAY 1)
     Route: 042
     Dates: start: 20210909, end: 20210909
  9. REMDESIVIR [Concomitant]
     Active Substance: REMDESIVIR
     Dosage: EVERY 24 H FOR THE NEXT 5 DAYS
     Route: 042
     Dates: start: 20210910, end: 20210914
  10. ALLOPURINOL [Concomitant]
     Active Substance: ALLOPURINOL
     Indication: Acute kidney injury
     Dates: start: 20210907, end: 20210913
  11. ALLOPURINOL [Concomitant]
     Active Substance: ALLOPURINOL
     Indication: Tumour lysis syndrome
  12. OXYGEN [Concomitant]
     Active Substance: OXYGEN
     Indication: Oxygen therapy
     Dates: start: 202109, end: 202109

REACTIONS (1)
  - Cerebral aspergillosis [Fatal]

NARRATIVE: CASE EVENT DATE: 20211021
